FAERS Safety Report 14764559 (Version 1)
Quarter: 2018Q2

REPORT INFORMATION
  Report Type: Spontaneous
  Country: RO (occurrence: RO)
  Receive Date: 20180416
  Receipt Date: 20180416
  Transmission Date: 20180711
  Serious: Yes (Other)
  Sender: FDA-Public Use
  Company Number: RO-ANIPHARMA-2018-RO-000001

PATIENT
  Sex: Male

DRUGS (7)
  1. MILURIT [Suspect]
     Active Substance: ALLOPURINOL
     Dosage: UNK
     Route: 065
  2. SORTIS [Suspect]
     Active Substance: ATORVASTATIN
     Dosage: UNK
     Route: 065
  3. FUROSEMIDE. [Suspect]
     Active Substance: FUROSEMIDE
     Dosage: UNK
     Route: 065
  4. CAVINTON [Suspect]
     Active Substance: VINPOCETINE
     Dosage: UNK
     Route: 065
  5. ASPENTER [Suspect]
     Active Substance: ASPIRIN
     Dosage: UNKNOWN
     Route: 065
  6. ATACAND [Suspect]
     Active Substance: CANDESARTAN CILEXETIL
     Dosage: 16MG
     Route: 048
  7. ELIQUIS [Suspect]
     Active Substance: APIXABAN
     Dosage: UNKNOWN
     Route: 065

REACTIONS (4)
  - Hyperhidrosis [Unknown]
  - Dizziness [Unknown]
  - Blood pressure increased [Unknown]
  - Loss of personal independence in daily activities [Unknown]
